FAERS Safety Report 5267804-7 (Version None)
Quarter: 2007Q1

REPORT INFORMATION
  Report Type: 
  Country: None (occurrence: None)
  Receive Date: 20070316
  Receipt Date: 20070309
  Transmission Date: 20070707
  Serious: Yes (Other)
  Sender: FDA-Public Use
  Company Number: JP-PFIZER INC-2007018113

PATIENT

DRUGS (2)
  1. ATARAX [Suspect]
     Route: 051
  2. ANALGESICS [Concomitant]

REACTIONS (1)
  - INJECTION SITE ULCER [None]
